FAERS Safety Report 25147570 (Version 1)
Quarter: 2025Q2

REPORT INFORMATION
  Report Type: Report from Study
  Country: CA (occurrence: CA)
  Receive Date: 20250402
  Receipt Date: 20250402
  Transmission Date: 20250716
  Serious: Yes (Hospitalization, Other)
  Sender: ABBVIE
  Company Number: CA-ABBVIE-6201403

PATIENT
  Sex: Male

DRUGS (1)
  1. RINVOQ [Suspect]
     Active Substance: UPADACITINIB
     Indication: Colitis ulcerative
     Dosage: FORM STRENGTH: 30 MG
     Route: 048

REACTIONS (10)
  - Loss of consciousness [Unknown]
  - Dizziness [Unknown]
  - Vision blurred [Unknown]
  - Dysarthria [Unknown]
  - Asthenia [Unknown]
  - Respiratory rate decreased [Unknown]
  - Oropharyngeal pain [Unknown]
  - Dysphagia [Unknown]
  - Chills [Unknown]
  - Constipation [Unknown]

NARRATIVE: CASE EVENT DATE: 20250301
